FAERS Safety Report 12737444 (Version 2)
Quarter: 2016Q3

REPORT INFORMATION
  Report Type: Spontaneous
  Country: US (occurrence: US)
  Receive Date: 20160912
  Receipt Date: 20160923
  Transmission Date: 20161109
  Serious: No
  Sender: FDA-Public Use
  Company Number: US-TEVA-680077USA

PATIENT
  Sex: Female

DRUGS (16)
  1. REGLAN [Suspect]
     Active Substance: METOCLOPRAMIDE HYDROCHLORIDE
     Route: 065
  2. AMPYRA [Suspect]
     Active Substance: DALFAMPRIDINE
     Route: 065
  3. CEFUROXIME. [Concomitant]
     Active Substance: CEFUROXIME
  4. PREDNISONE. [Concomitant]
     Active Substance: PREDNISONE
  5. LEVAQUIN [Suspect]
     Active Substance: LEVOFLOXACIN
     Route: 065
  6. MIRAPEX [Suspect]
     Active Substance: PRAMIPEXOLE DIHYDROCHLORIDE
     Route: 065
  7. RELAFEN [Suspect]
     Active Substance: NABUMETONE
     Route: 065
  8. ALBUTEROL W/IPRATROPIUM [Concomitant]
     Active Substance: ALBUTEROL\IPRATROPIUM
  9. THEOPHYLLINE [Concomitant]
     Active Substance: THEOPHYLLINE ANHYDROUS
  10. K-TAB [Concomitant]
     Active Substance: POTASSIUM CHLORIDE
  11. PROVIGIL [Suspect]
     Active Substance: MODAFINIL
     Route: 065
  12. SULFA [Suspect]
     Active Substance: UNSPECIFIED INGREDIENT
     Route: 065
  13. CONCERTA [Suspect]
     Active Substance: METHYLPHENIDATE HYDROCHLORIDE
     Route: 065
  14. LIPITOR [Suspect]
     Active Substance: ATORVASTATIN CALCIUM
     Route: 065
  15. NORVASC [Concomitant]
     Active Substance: AMLODIPINE BESYLATE
  16. TYLENOL ARTHRITIS PAIN [Concomitant]
     Active Substance: ACETAMINOPHEN

REACTIONS (3)
  - Drug hypersensitivity [Unknown]
  - Rash [Unknown]
  - Tendonitis [Unknown]
